FAERS Safety Report 21332275 (Version 5)
Quarter: 2022Q4

REPORT INFORMATION
  Report Type: Spontaneous
  Country: GB (occurrence: GB)
  Receive Date: 20220914
  Receipt Date: 20221123
  Transmission Date: 20230113
  Serious: Yes (Death, Hospitalization, Other)
  Sender: FDA-Public Use
  Company Number: GB-NOVARTISPH-NVSC2018GB021902

PATIENT
  Age: 67 Year
  Sex: Female

DRUGS (31)
  1. CAPECITABINE [Suspect]
     Active Substance: CAPECITABINE
     Indication: Breast cancer metastatic
     Dosage: 1000 MG, UNK (EVERY 4 DAYS)
     Route: 048
  2. CAPECITABINE [Suspect]
     Active Substance: CAPECITABINE
     Dosage: 1500 MG (TIME INTERVAL BETWEEN BEGINNING OF DRUG ADMINISTRATION AND END OF REACTION/EV)
     Route: 048
     Dates: start: 20161122, end: 20161213
  3. CAPECITABINE [Suspect]
     Active Substance: CAPECITABINE
     Dosage: 1300 MG, 2MULTIPLY/DAY (TIME INTERVAL BETWEEN BEGINNING OF DRUG ADMINISTRATION AND END OF REACTION/E
     Route: 048
     Dates: start: 20161213, end: 20161216
  4. CAPECITABINE [Suspect]
     Active Substance: CAPECITABINE
     Dosage: 1000 MG
     Route: 048
     Dates: start: 20161213, end: 20161216
  5. CAPECITABINE [Suspect]
     Active Substance: CAPECITABINE
     Dosage: 1000 M (1500 MG, 1300 MG FROM 13 DEC 2016 TO 16 DEC 2016))
     Route: 065
     Dates: start: 20161122
  6. PACLITAXEL [Suspect]
     Active Substance: PACLITAXEL
     Indication: Breast cancer metastatic
     Dosage: 141 MG, QMO
     Route: 042
     Dates: start: 20151124, end: 20151221
  7. PACLITAXEL [Suspect]
     Active Substance: PACLITAXEL
     Dosage: 141 MG
     Route: 042
     Dates: start: 20161122
  8. EXEMESTANE [Suspect]
     Active Substance: EXEMESTANE
     Indication: Breast cancer metastatic
     Dosage: 25 MG, QD (25 MG, 1 MULTIPLY /DAY)
     Route: 048
     Dates: start: 20160531, end: 20160610
  9. EXEMESTANE [Suspect]
     Active Substance: EXEMESTANE
     Dosage: UNK
     Route: 048
     Dates: start: 20160531, end: 20160610
  10. EXEMESTANE [Suspect]
     Active Substance: EXEMESTANE
     Dosage: UNK
     Route: 048
     Dates: start: 20160712
  11. TAMOXIFEN [Suspect]
     Active Substance: TAMOXIFEN
     Indication: Breast cancer metastatic
     Dosage: 600 MG
     Route: 048
  12. TAMOXIFEN [Suspect]
     Active Substance: TAMOXIFEN
     Dosage: 20 MG, QD (1 MULTIPLY/DAY)
     Route: 065
     Dates: start: 20160712, end: 20160802
  13. TAMOXIFEN [Suspect]
     Active Substance: TAMOXIFEN
     Dosage: 600 MG, QW
     Route: 065
     Dates: start: 20160712, end: 20160802
  14. TRASTUZUMAB [Suspect]
     Active Substance: TRASTUZUMAB
     Indication: Breast cancer metastatic
     Dosage: 600 MG, Q3W (FORMULATION: INJECTION)
     Route: 058
     Dates: start: 20151124, end: 20151221
  15. TRASTUZUMAB [Suspect]
     Active Substance: TRASTUZUMAB
     Dosage: 600 MG, Q3W (FORMULATION: INJECTION)
     Route: 058
     Dates: start: 20160531, end: 20161115
  16. ADALIMUMAB [Suspect]
     Active Substance: ADALIMUMAB
     Indication: Product used for unknown indication
     Dosage: 40 MG, Q2W
     Route: 058
     Dates: start: 20151124
  17. HYALURONIDASE (HUMAN RECOMBINANT) [Suspect]
     Active Substance: HYALURONIDASE (HUMAN RECOMBINANT)
     Indication: HER2 positive breast cancer
     Dosage: 600 MG, Q3W
     Route: 065
     Dates: start: 20151124, end: 20151221
  18. HYALURONIDASE (HUMAN RECOMBINANT) [Suspect]
     Active Substance: HYALURONIDASE (HUMAN RECOMBINANT)
     Dosage: UNK
     Route: 065
     Dates: start: 20160531, end: 20161115
  19. HYALURONIDASE [Suspect]
     Active Substance: HYALURONIDASE
     Indication: HER2 positive breast cancer
     Dosage: 600 MG, Q3W
     Route: 058
     Dates: start: 20151124, end: 20151221
  20. HYALURONIDASE [Suspect]
     Active Substance: HYALURONIDASE
     Dosage: 600 MILLIGRAM, EVERY 3 WEEKS
     Route: 058
     Dates: start: 20160531, end: 20161115
  21. SOLTAMOX [Suspect]
     Active Substance: TAMOXIFEN CITRATE
     Indication: Breast cancer metastatic
     Dosage: 600 MG, Q3W (20 MG, QD TIME INTERVAL BETWEEN BEGINNING OF DRUG0
     Route: 065
     Dates: start: 20160712, end: 20160802
  22. SOLTAMOX [Suspect]
     Active Substance: TAMOXIFEN CITRATE
     Dosage: 600 MG, Q3W
     Route: 065
  23. ENOXAPARIN [Concomitant]
     Active Substance: ENOXAPARIN
     Indication: Embolism venous
     Dosage: 20 MG, QD (PREVENTION OF VENOUS THROMBOEMBOLISM)
     Route: 065
     Dates: start: 20160104, end: 20160106
  24. ENOXAPARIN [Concomitant]
     Active Substance: ENOXAPARIN
     Dosage: 20 MG, QD (20 MG, 1X/DAY)
     Route: 065
     Dates: start: 20160106
  25. CALCIUM CARBONATE\CHOLECALCIFEROL [Concomitant]
     Active Substance: CALCIUM CARBONATE\CHOLECALCIFEROL
     Indication: Product used for unknown indication
     Dosage: 1 DOSAGE FORM, QD
     Route: 065
     Dates: start: 20101221
  26. CALCIUM CARBONATE\CHOLECALCIFEROL [Concomitant]
     Active Substance: CALCIUM CARBONATE\CHOLECALCIFEROL
     Dosage: 1.5 G, 1 MULTIPLY/DAY
     Route: 048
     Dates: start: 20101221, end: 201511
  27. CALCIUM CARBONATE\CHOLECALCIFEROL [Concomitant]
     Active Substance: CALCIUM CARBONATE\CHOLECALCIFEROL
     Dosage: 2 G, QD
     Route: 065
     Dates: start: 20101221, end: 201511
  28. OMEPRAZOLE [Concomitant]
     Active Substance: OMEPRAZOLE
     Indication: Product used for unknown indication
     Dosage: 1 DOSAGE FORM, QD
     Route: 065
  29. OMEPRAZOLE [Concomitant]
     Active Substance: OMEPRAZOLE
     Dosage: 20 MG, QD (20 MG, 1X/DAY)
     Route: 065
  30. OMEPRAZOLE [Concomitant]
     Active Substance: OMEPRAZOLE
     Dosage: 20 MG, QD
     Route: 048
  31. CHOLECALCIFEROL [Concomitant]
     Active Substance: CHOLECALCIFEROL
     Indication: Product used for unknown indication
     Dosage: 2 G
     Route: 048
     Dates: start: 20101221

REACTIONS (63)
  - Death [Fatal]
  - Cerebral haemorrhage [Recovered/Resolved]
  - Cerebral haemorrhage [Recovered/Resolved with Sequelae]
  - Lymphopenia [Recovered/Resolved with Sequelae]
  - Hypoalbuminaemia [Recovered/Resolved]
  - Sensory loss [Not Recovered/Not Resolved]
  - Hypernatraemia [Recovered/Resolved]
  - Blood urea increased [Unknown]
  - Blood glucose increased [Recovered/Resolved]
  - White blood cell count increased [Recovered/Resolved]
  - Blood phosphorus increased [Recovered/Resolved]
  - Protein total decreased [Recovered/Resolved]
  - Neutrophil count increased [Recovered/Resolved]
  - C-reactive protein increased [Unknown]
  - Musculoskeletal stiffness [Not Recovered/Not Resolved]
  - Haemoglobin decreased [Not Recovered/Not Resolved]
  - Pain [Recovered/Resolved]
  - Blood bilirubin increased [Recovered/Resolved]
  - Asthenia [Not Recovered/Not Resolved]
  - Dyspnoea [Recovered/Resolved]
  - Urinary tract infection [Unknown]
  - Hypertension [Recovered/Resolved with Sequelae]
  - Hypokalaemia [Recovered/Resolved]
  - Constipation [Recovered/Resolved]
  - Diarrhoea [Recovered/Resolved]
  - Fatigue [Recovered/Resolved]
  - Aspartate aminotransferase increased [Recovered/Resolved]
  - Blood creatinine increased [Recovered/Resolved]
  - Dyspnoea [Recovered/Resolved]
  - Ill-defined disorder [Recovered/Resolved]
  - Rectal haemorrhage [Unknown]
  - Depressed mood [Unknown]
  - Insomnia [Unknown]
  - Vomiting [Recovered/Resolved]
  - Balance disorder [Not Recovered/Not Resolved]
  - Vomiting [Recovered/Resolved]
  - Pyrexia [Recovered/Resolved]
  - Nausea [Recovered/Resolved]
  - Blood alkaline phosphatase increased [Recovered/Resolved with Sequelae]
  - Sinusitis [Recovered/Resolved]
  - Crying [Recovered/Resolved]
  - Muscle twitching [Recovered/Resolved]
  - Vomiting [Recovered/Resolved]
  - Tremor [Unknown]
  - Abdominal pain upper [Unknown]
  - Headache [Unknown]
  - Back pain [Recovered/Resolved]
  - Vomiting [Recovered/Resolved]
  - Irritability [Recovered/Resolved]
  - Nausea [Recovered/Resolved]
  - Agitation [Recovered/Resolved]
  - Ascites [Not Recovered/Not Resolved]
  - Colitis ulcerative [Recovered/Resolved]
  - Product administered at inappropriate site [Unknown]
  - Balance disorder [Not Recovered/Not Resolved]
  - Sensory disturbance [Not Recovered/Not Resolved]
  - Alanine aminotransferase increased [Recovered/Resolved]
  - Crohn^s disease [Not Recovered/Not Resolved]
  - Fatigue [Unknown]
  - Neck pain [Unknown]
  - Product administered at inappropriate site [Unknown]
  - Injection site pain [Unknown]
  - Malaise [Unknown]

NARRATIVE: CASE EVENT DATE: 20151110
